FAERS Safety Report 22954807 (Version 3)
Quarter: 2025Q1

REPORT INFORMATION
  Report Type: Spontaneous
  Country: US (occurrence: US)
  Receive Date: 20230918
  Receipt Date: 20250313
  Transmission Date: 20250409
  Serious: Yes (Other)
  Sender: BRACCO
  Company Number: US-BRACCO-2023US04622

PATIENT

DRUGS (1)
  1. MULTIHANCE [Suspect]
     Active Substance: GADOBENATE DIMEGLUMINE
     Indication: Magnetic resonance imaging

REACTIONS (6)
  - Hepatic fibrosis [Unknown]
  - Condition aggravated [Unknown]
  - Drug clearance decreased [Unknown]
  - Rash macular [Unknown]
  - Urticaria [Unknown]
  - Foreign body in skin or subcutaneous tissue [Unknown]
